FAERS Safety Report 10644623 (Version 5)
Quarter: 2015Q2

REPORT INFORMATION
  Report Type: Spontaneous
  Country: US (occurrence: US)
  Receive Date: 20141210
  Receipt Date: 20150408
  Transmission Date: 20150821
  Serious: Yes (Hospitalization, Other)
  Sender: FDA-Public Use
  Company Number: US-AMGEN-USASP2013063095

PATIENT
  Age: 58 Year
  Sex: Female

DRUGS (1)
  1. ENBREL [Suspect]
     Active Substance: ETANERCEPT
     Indication: RHEUMATOID ARTHRITIS
     Dosage: 25 MG, 2 TIMES/WK
     Route: 065
     Dates: start: 20070201, end: 201501

REACTIONS (15)
  - Ankle fracture [Unknown]
  - Fall [Unknown]
  - Fracture [Unknown]
  - Haemorrhage [Unknown]
  - Amputation [Recovered/Resolved]
  - Haemoglobin decreased [Recovered/Resolved]
  - Accident [Unknown]
  - Pain in extremity [Not Recovered/Not Resolved]
  - Renal failure [Recovered/Resolved]
  - Lower limb fracture [Recovered/Resolved]
  - Vomiting [Recovered/Resolved]
  - Blood iron decreased [Recovered/Resolved]
  - Pain [Not Recovered/Not Resolved]
  - Malaise [Recovered/Resolved]
  - Muscular weakness [Not Recovered/Not Resolved]

NARRATIVE: CASE EVENT DATE: 2012
